FAERS Safety Report 6735679-2 (Version None)
Quarter: 2010Q2

REPORT INFORMATION
  Report Type: 
  Country: None (occurrence: None)
  Receive Date: 20100521
  Receipt Date: 20100512
  Transmission Date: 20101027
  Serious: Yes (Hospitalization)
  Sender: FDA-Public Use
  Company Number: JP-BAYER-201012287BYL

PATIENT
  Age: 69 Year
  Sex: Male

DRUGS (5)
  1. ASPIRIN [Suspect]
     Indication: ANTICOAGULANT THERAPY
     Route: 048
     Dates: start: 20081201, end: 20081201
  2. ASPIRIN [Suspect]
     Dosage: AS USED: 100 MG  UNIT DOSE: 100 MG
     Route: 048
     Dates: start: 20081201
  3. CLOPIDOGREL [Suspect]
     Indication: ANTICOAGULANT THERAPY
     Route: 048
     Dates: start: 20081201, end: 20081203
  4. HEPARIN [Suspect]
     Indication: ANTICOAGULANT THERAPY
     Route: 065
     Dates: start: 20081201, end: 20081201
  5. CILOSTAZOL [Suspect]
     Indication: ANTICOAGULANT THERAPY
     Route: 048
     Dates: start: 20081204, end: 20081208

REACTIONS (1)
  - DIVERTICULUM INTESTINAL HAEMORRHAGIC [None]
